FAERS Safety Report 5840623-6 (Version None)
Quarter: 2008Q3

REPORT INFORMATION
  Report Type: 
  Country: None (occurrence: None)
  Receive Date: 20080811
  Receipt Date: 20080730
  Transmission Date: 20090109
  Serious: Yes (Other)
  Sender: FDA-Public Use
  Company Number: GB-PFIZER INC-2008064424

PATIENT
  Age: 23 Year
  Sex: Male

DRUGS (3)
  1. CHANTIX [Suspect]
     Indication: SMOKING CESSATION THERAPY
     Route: 048
  2. ANUSOL HC [Concomitant]
  3. AZITHROMYCIN [Concomitant]
     Route: 048
     Dates: start: 20080429, end: 20080429

REACTIONS (1)
  - AGGRESSION [None]
